FAERS Safety Report 15196035 (Version 1)
Quarter: 2018Q3

REPORT INFORMATION
  Report Type: Spontaneous
  Country: US (occurrence: US)
  Receive Date: 20180725
  Receipt Date: 20180725
  Transmission Date: 20181010
  Serious: Yes (Hospitalization, Other)
  Sender: FDA-Public Use
  Company Number: US-OTSUKA-2018_025619

PATIENT
  Sex: Male

DRUGS (2)
  1. ABILIFY [Suspect]
     Active Substance: ARIPIPRAZOLE
     Indication: SCHIZOPHRENIA
     Dosage: 5 MG, QD
     Route: 065
     Dates: start: 2005, end: 2009
  2. ABILIFY [Suspect]
     Active Substance: ARIPIPRAZOLE
     Indication: BIPOLAR DISORDER

REACTIONS (10)
  - Psychiatric symptom [Unknown]
  - Suicidal ideation [Recovered/Resolved]
  - Economic problem [Unknown]
  - Dependence [Unknown]
  - Gambling disorder [Recovered/Resolved]
  - Suicide attempt [Recovered/Resolved]
  - Compulsive hoarding [Recovered/Resolved]
  - Aggression [Recovered/Resolved]
  - Loss of employment [Unknown]
  - Compulsive shopping [Recovered/Resolved]
